FAERS Safety Report 7911248-3 (Version None)
Quarter: 2011Q4

REPORT INFORMATION
  Report Type: 
  Country: None (occurrence: None)
  Receive Date: 20111114
  Receipt Date: 20111104
  Transmission Date: 20120403
  Serious: Yes (Hospitalization)
  Sender: FDA-Public Use
  Company Number: US-GENZYME-MOZO-1000576

PATIENT

DRUGS (4)
  1. MOZOBIL [Suspect]
     Indication: HAEMATOPOIETIC STEM CELL MOBILISATION
     Route: 042
  2. DECITABINE [Suspect]
     Dosage: 20 MG/M2, QD
     Route: 042
  3. MOZOBIL [Suspect]
     Indication: ACUTE MYELOID LEUKAEMIA
     Route: 042
  4. DECITABINE [Suspect]
     Indication: ACUTE MYELOID LEUKAEMIA
     Dosage: 20 MG/M2, QD
     Route: 042

REACTIONS (2)
  - FEBRILE NEUTROPENIA [None]
  - ABDOMINAL PAIN [None]
